FAERS Safety Report 8893620 (Version 1)
Quarter: 2012Q4

REPORT INFORMATION
  Report Type: 
  Country: BA (occurrence: BA)
  Receive Date: 20121108
  Receipt Date: 20121108
  Transmission Date: 20130627
  Serious: Yes (Death)
  Sender: FDA-Public Use
  Company Number: BA-JNJFOC-20121013213

PATIENT
  Age: 36 Year
  Sex: Male

DRUGS (8)
  1. RISPOLEPT CONSTA [Suspect]
     Indication: SCHIZOPHRENIA
     Route: 030
     Dates: end: 20121012
  2. RISPOLEPT CONSTA [Suspect]
     Indication: SCHIZOPHRENIA
     Route: 030
     Dates: start: 20120720
  3. RISPOLEPT CONSTA [Suspect]
     Indication: SCHIZOPHRENIA
     Route: 030
     Dates: start: 201208
  4. RISSET [Concomitant]
     Indication: PSYCHOTIC DISORDER
     Dosage: One tablet in moring and one in the evening
  5. LEXILIUM [Concomitant]
     Indication: PSYCHOTIC DISORDER
  6. HALDOL [Concomitant]
     Indication: PSYCHOTIC DISORDER
     Dosage: one half of the tablet
  7. BIPERIDEN [Concomitant]
     Indication: PSYCHOTIC DISORDER
  8. LAMICTAL [Concomitant]
     Indication: PSYCHOTIC DISORDER
     Dosage: one tablet in the morning and one in the evening

REACTIONS (2)
  - Completed suicide [Fatal]
  - Hallucination, auditory [Unknown]
